FAERS Safety Report 9648669 (Version 1)
Quarter: 2013Q4

REPORT INFORMATION
  Report Type: Spontaneous
  Country: US (occurrence: US)
  Receive Date: 20131028
  Receipt Date: 20131028
  Transmission Date: 20140711
  Serious: No
  Sender: FDA-Public Use
  Company Number: US-BAUSCH-BL-2013-002534

PATIENT
  Sex: Female

DRUGS (1)
  1. PROPARACAINE HYDROCHLORIDE OPHTHALMIC SOLUTION USP 0.5% [Suspect]
     Indication: PRODUCT USED FOR UNKNOWN INDICATION
     Dosage: GTT; TOPICAL
     Route: 061

REACTIONS (2)
  - Accidental exposure to product [Unknown]
  - Skin reaction [Unknown]
